FAERS Safety Report 5286887-1 (Version None)
Quarter: 2007Q1

REPORT INFORMATION
  Report Type: 
  Country: None (occurrence: None)
  Receive Date: 20070329
  Receipt Date: 20070316
  Transmission Date: 20070707
  Serious: Yes (Other)
  Sender: FDA-Public Use
  Company Number: 2007US000597

PATIENT
  Age: 70 Year
  Sex: Female

DRUGS (1)
  1. VAPRISOL [Suspect]
     Dosage: HYPONATRAEMIA

REACTIONS (1)
  - TACHYCARDIA [None]
